FAERS Safety Report 13427674 (Version 5)
Quarter: 2017Q3

REPORT INFORMATION
  Report Type: Report from Study
  Country: CH (occurrence: CH)
  Receive Date: 20170411
  Receipt Date: 20170726
  Transmission Date: 20171127
  Serious: Yes (Death)
  Sender: FDA-Public Use
  Company Number: CH-ROCHE-1913425

PATIENT
  Age: 77 Year
  Sex: Female
  Weight: 63.5 kg

DRUGS (4)
  1. BLINDED ASPIRIN [Suspect]
     Active Substance: ASPIRIN
     Indication: OVARIAN CANCER
     Dosage: DATE OF MOST RECENT ADMINISTRATION OF BLINDED ASPIRIN: UNKNOWN
     Route: 048
     Dates: start: 20170217
  2. CO-DAFALGAN [Concomitant]
     Active Substance: ACETAMINOPHEN\CODEINE PHOSPHATE
     Dosage: DOSE: 3 IN 1 DAY?STOP DATE UNKNOWN
     Route: 048
     Dates: start: 20170304
  3. DAFALGAN [Concomitant]
     Active Substance: ACETAMINOPHEN
     Indication: MYALGIA
     Dosage: STOP DATE UNKNOWN
     Route: 048
     Dates: start: 20170304
  4. ATEZOLIZUMAB. [Suspect]
     Active Substance: ATEZOLIZUMAB
     Indication: OVARIAN CANCER
     Dosage: FLAT DOSE?DATE OF MOST RECENT DOSE OF ATEZOLIZUMAB ADMINISTERED 17/FEB/2017
     Route: 042
     Dates: start: 20170217, end: 20170217

REACTIONS (1)
  - Sudden death [Fatal]

NARRATIVE: CASE EVENT DATE: 20170305
